FAERS Safety Report 23623662 (Version 1)
Quarter: 2024Q1

REPORT INFORMATION
  Report Type: Spontaneous
  Country: AU (occurrence: AU)
  Receive Date: 20240312
  Receipt Date: 20240312
  Transmission Date: 20240410
  Serious: Yes (Hospitalization, Other)
  Sender: FDA-Public Use
  Company Number: AU-GLAXOSMITHKLINE-AU2024GSK029737

PATIENT

DRUGS (11)
  1. MEPOLIZUMAB [Suspect]
     Active Substance: MEPOLIZUMAB
     Indication: Hypereosinophilic syndrome
     Dosage: 300 MG, Q4W
     Dates: start: 202201, end: 2022
  2. MYCOPHENOLATE MOFETIL [Suspect]
     Active Substance: MYCOPHENOLATE MOFETIL
     Indication: Hypereosinophilic syndrome
     Dosage: 1 G, BID
     Dates: start: 2021
  3. MYCOPHENOLATE MOFETIL [Suspect]
     Active Substance: MYCOPHENOLATE MOFETIL
     Indication: Off label use
  4. PREDNISOLONE [Suspect]
     Active Substance: PREDNISOLONE
     Indication: Eosinophilic pneumonia
     Dosage: 20 MG, 1D
     Dates: start: 2021
  5. PREDNISOLONE [Suspect]
     Active Substance: PREDNISOLONE
     Indication: Hypereosinophilic syndrome
     Dosage: 25 MG, 1D
     Dates: start: 2021, end: 2021
  6. PREDNISOLONE [Suspect]
     Active Substance: PREDNISOLONE
     Indication: Off label use
     Dosage: 50 MG, 1D
     Dates: start: 2021, end: 2021
  7. PREDNISOLONE [Suspect]
     Active Substance: PREDNISOLONE
     Dosage: 7.5 MG, 1D (TAPERED DOSE)
     Dates: start: 2022
  8. DOXYCYCLINE [Concomitant]
     Active Substance: DOXYCYCLINE
     Indication: Pneumonia
     Dosage: UNK
  9. IVERMECTIN [Concomitant]
     Active Substance: IVERMECTIN
     Indication: Immunosuppression
     Dosage: UNK (200 MCG/KG)
     Route: 048
     Dates: start: 2021
  10. IVERMECTIN [Concomitant]
     Active Substance: IVERMECTIN
     Indication: Nematodiasis
     Dosage: UNK (200 MCG/KG/ REPEAT DOSE AFTER 14 DAYS)
     Route: 048
  11. IVERMECTIN [Concomitant]
     Active Substance: IVERMECTIN
     Indication: Nervous system disorder
     Dosage: UNK (200 MCG/KG)

REACTIONS (12)
  - Visceral larva migrans [Recovering/Resolving]
  - Helminthic infection [Unknown]
  - Hookworm infection [Recovering/Resolving]
  - Nematodiasis [Recovering/Resolving]
  - Central nervous system infection [Recovering/Resolving]
  - Central nervous system lesion [Not Recovered/Not Resolved]
  - Memory impairment [Not Recovered/Not Resolved]
  - Depression [Not Recovered/Not Resolved]
  - Eosinophilia [Recovered/Resolved]
  - Lung disorder [Recovered/Resolved]
  - Hepatic lesion [Recovered/Resolved]
  - Splenic lesion [Not Recovered/Not Resolved]
